FAERS Safety Report 7387569-2 (Version None)
Quarter: 2011Q1

REPORT INFORMATION
  Report Type: 
  Country: None (occurrence: None)
  Receive Date: 20110331
  Receipt Date: 20110328
  Transmission Date: 20110831
  Serious: Yes (Life-Threatening, Hospitalization)
  Sender: FDA-Public Use
  Company Number: ES-PFIZER INC-ES-WYE-H14619810

PATIENT
  Age: 76 Year
  Sex: Female

DRUGS (6)
  1. DIGOXIN [Concomitant]
     Dosage: UNK
     Route: 065
     Dates: start: 20070101
  2. ALDOCUMAR [Suspect]
     Indication: ATRIAL FIBRILLATION
     Dosage: UNKNOWN
     Route: 048
     Dates: start: 20080701, end: 20081019
  3. TRANGOREX [Suspect]
     Indication: ATRIAL FIBRILLATION
     Dosage: 200 MG, 1X/DAY
     Route: 048
     Dates: start: 20070101, end: 20081019
  4. BESITRAN [Suspect]
     Dosage: 50 MG, 1X/DAY
     Route: 048
     Dates: start: 20080601, end: 20081019
  5. CARDISER - SLOW RELEASE [Concomitant]
  6. LEVOTHYROXINE SODIUM [Suspect]
     Indication: HYPOTHYROIDISM
     Dosage: 150 UG, 1X/DAY

REACTIONS (2)
  - DRUG INTERACTION [None]
  - CEREBRAL HAEMATOMA [None]
